FAERS Safety Report 4615873-7 (Version None)
Quarter: 2005Q1

REPORT INFORMATION
  Report Type: 
  Country: None (occurrence: None)
  Receive Date: 20050317
  Receipt Date: 20050302
  Transmission Date: 20050727
  Serious: Yes (Other)
  Sender: FDA-Public Use
  Company Number: GXKR2005DE00668

PATIENT
  Age: 37 Year
  Sex: Female
  Weight: 65 kg

DRUGS (1)
  1. OSPEN 1500-FILMTABLETTEN (NGX)(PHENOXYMETHYLPENICILLIN (=PENICILLIN V) [Suspect]
     Dosage: 900 MG, TID, ORAL
     Route: 048
     Dates: start: 20041231

REACTIONS (2)
  - HYPERSENSITIVITY [None]
  - MYALGIA [None]
